FAERS Safety Report 11886608 (Version 3)
Quarter: 2016Q2

REPORT INFORMATION
  Report Type: Spontaneous
  Country: US (occurrence: US)
  Receive Date: 20160104
  Receipt Date: 20160407
  Transmission Date: 20160815
  Serious: No
  Sender: FDA-Public Use
  Company Number: US-PFIZER INC-2015440621

PATIENT
  Age: 66 Year
  Sex: Female
  Weight: 84 kg

DRUGS (18)
  1. LYRICA [Suspect]
     Active Substance: PREGABALIN
     Indication: DIABETIC NEUROPATHY
     Dosage: 150 MG, 3X/DAY
     Route: 048
     Dates: start: 20140917
  2. LYRICA [Suspect]
     Active Substance: PREGABALIN
     Indication: FIBROMYALGIA
     Dosage: 150 MG, 3X/DAY
     Dates: start: 1995
  3. IRBESART/HCT [Concomitant]
     Indication: BLOOD PRESSURE ABNORMAL
     Dosage: 50-12.5, 1/2 TABLET, 1X/DAY
  4. IRBESART/HCT [Concomitant]
     Dosage: UNK UNK, 1X/DAY
     Dates: start: 1998
  5. OMEGA XL [Concomitant]
     Active Substance: DIETARY SUPPLEMENT
     Indication: BLOOD CHOLESTEROL INCREASED
     Dosage: 4 DF, DAILY
     Dates: start: 2013
  6. HYDROCODONE [Concomitant]
     Active Substance: HYDROCODONE
     Dosage: UNK
     Dates: start: 2008
  7. LYRICA [Suspect]
     Active Substance: PREGABALIN
     Indication: NEUROPATHY PERIPHERAL
     Dosage: UNK, 3X/DAY (150)
     Dates: start: 1996
  8. FUROSEMIDE. [Concomitant]
     Active Substance: FUROSEMIDE
     Indication: FLUID RETENTION
     Dosage: 20 MG, 1X/DAY, 1/2 TABLET
     Dates: start: 2000
  9. FUROSEMIDE. [Concomitant]
     Active Substance: FUROSEMIDE
     Dosage: UNK UNK, 1X/DAY
     Dates: start: 1998
  10. HYDROCODONE [Concomitant]
     Active Substance: HYDROCODONE
     Indication: PAIN
     Dosage: 5/325 MG, 3X/DAY
     Dates: start: 2005
  11. MELOXICAM. [Concomitant]
     Active Substance: MELOXICAM
     Indication: PAIN
     Dosage: 15 MG, 1X/DAY
     Dates: start: 2010
  12. MELOXICAM. [Concomitant]
     Active Substance: MELOXICAM
     Dosage: UNK
     Dates: start: 2012
  13. ELESTRIN [Concomitant]
     Active Substance: ESTRADIOL
     Indication: HORMONE THERAPY
     Dosage: 0.06% TWO PUMPS, 1X/DAY
     Dates: start: 2013
  14. VITAMIN D3 [Concomitant]
     Active Substance: CHOLECALCIFEROL
     Indication: BONE DISORDER
     Dosage: UNK UNK, 1X/DAY
     Dates: start: 201509
  15. OMEGA XL [Concomitant]
     Active Substance: DIETARY SUPPLEMENT
     Dosage: UNK, 2X/DAY
  16. BACLOFEN. [Concomitant]
     Active Substance: BACLOFEN
     Dosage: UNK UNK, AS NEEDED (1 A DAY OR MORE)
  17. SIMVASTATIN. [Concomitant]
     Active Substance: SIMVASTATIN
     Indication: BLOOD CHOLESTEROL INCREASED
     Dosage: 20 MG, 1X/DAY
     Dates: start: 2010
  18. ELESTRIN [Concomitant]
     Active Substance: ESTRADIOL
     Dosage: 2 DF, 1X/DAY (2 PUMPS A DAY)
     Dates: start: 2012

REACTIONS (8)
  - Bronchitis [Not Recovered/Not Resolved]
  - Sinusitis [Not Recovered/Not Resolved]
  - Pain in extremity [Not Recovered/Not Resolved]
  - Pain [Unknown]
  - Oropharyngeal pain [Unknown]
  - Nasopharyngitis [Not Recovered/Not Resolved]
  - Respiratory tract congestion [Unknown]
  - Middle ear effusion [Not Recovered/Not Resolved]

NARRATIVE: CASE EVENT DATE: 1995
